FAERS Safety Report 25542447 (Version 1)
Quarter: 2025Q3

REPORT INFORMATION
  Report Type: Other
  Country: CA (occurrence: CA)
  Receive Date: 20250711
  Receipt Date: 20250711
  Transmission Date: 20251020
  Serious: Yes (Death, Life-Threatening, Hospitalization, Disabling, Other)
  Sender: BIOCON
  Company Number: CA-BIOCON BIOLOGICS LIMITED-BBL2025003511

PATIENT

DRUGS (441)
  1. ADALIMUMAB [Suspect]
     Active Substance: ADALIMUMAB
     Indication: Psoriatic arthropathy
     Route: 058
  2. ADALIMUMAB [Suspect]
     Active Substance: ADALIMUMAB
     Route: 058
  3. ADALIMUMAB [Suspect]
     Active Substance: ADALIMUMAB
     Route: 048
  4. PREDNISONE [Suspect]
     Active Substance: PREDNISONE
     Indication: Rheumatoid arthritis
     Route: 065
  5. PREDNISONE [Suspect]
     Active Substance: PREDNISONE
     Route: 048
  6. PREDNISONE [Suspect]
     Active Substance: PREDNISONE
     Route: 065
  7. PREDNISONE [Suspect]
     Active Substance: PREDNISONE
     Route: 048
  8. ACTEMRA [Suspect]
     Active Substance: TOCILIZUMAB
     Indication: Rheumatoid arthritis
     Route: 065
  9. ACTEMRA [Suspect]
     Active Substance: TOCILIZUMAB
     Route: 042
  10. ACTEMRA [Suspect]
     Active Substance: TOCILIZUMAB
     Route: 042
  11. ACTEMRA [Suspect]
     Active Substance: TOCILIZUMAB
     Route: 042
  12. ACTEMRA [Suspect]
     Active Substance: TOCILIZUMAB
     Route: 042
  13. ACTEMRA [Suspect]
     Active Substance: TOCILIZUMAB
     Route: 042
  14. ACTEMRA [Suspect]
     Active Substance: TOCILIZUMAB
     Route: 042
  15. ACTEMRA [Suspect]
     Active Substance: TOCILIZUMAB
     Route: 042
  16. ACTEMRA [Suspect]
     Active Substance: TOCILIZUMAB
     Route: 065
  17. ACTEMRA [Suspect]
     Active Substance: TOCILIZUMAB
     Route: 065
  18. ACTEMRA [Suspect]
     Active Substance: TOCILIZUMAB
     Route: 042
  19. ACTEMRA [Suspect]
     Active Substance: TOCILIZUMAB
     Route: 042
  20. ACTEMRA [Suspect]
     Active Substance: TOCILIZUMAB
     Route: 042
  21. ACTEMRA [Suspect]
     Active Substance: TOCILIZUMAB
     Route: 042
  22. ACTEMRA [Suspect]
     Active Substance: TOCILIZUMAB
     Route: 042
  23. ACTEMRA [Suspect]
     Active Substance: TOCILIZUMAB
     Route: 042
  24. APREMILAST [Suspect]
     Active Substance: APREMILAST
     Indication: Product used for unknown indication
     Route: 042
  25. APREMILAST [Suspect]
     Active Substance: APREMILAST
     Route: 065
  26. APREMILAST [Suspect]
     Active Substance: APREMILAST
     Route: 042
  27. ACETAMINOPHEN AND CODEINE [Suspect]
     Active Substance: ACETAMINOPHEN\CODEINE PHOSPHATE
     Indication: Rheumatoid arthritis
     Route: 065
  28. ARAVA [Suspect]
     Active Substance: LEFLUNOMIDE
     Indication: Rheumatoid arthritis
     Dosage: 20 MG 1 EVERY 1 DAYS
     Route: 048
  29. ALENDRONATE SODIUM [Suspect]
     Active Substance: ALENDRONATE SODIUM
     Indication: Rheumatoid arthritis
     Route: 065
  30. CORTISONE ACETATE [Suspect]
     Active Substance: CORTISONE ACETATE
     Indication: Rheumatoid arthritis
     Route: 048
  31. CORTISONE ACETATE [Suspect]
     Active Substance: CORTISONE ACETATE
     Route: 048
  32. CORTISONE ACETATE [Suspect]
     Active Substance: CORTISONE ACETATE
     Route: 048
  33. CORTISONE ACETATE [Suspect]
     Active Substance: CORTISONE ACETATE
     Route: 058
  34. CORTISONE ACETATE [Suspect]
     Active Substance: CORTISONE ACETATE
     Route: 058
  35. CORTISONE ACETATE [Suspect]
     Active Substance: CORTISONE ACETATE
     Route: 065
  36. CORTISONE ACETATE [Suspect]
     Active Substance: CORTISONE ACETATE
     Route: 065
  37. CORTISONE ACETATE [Suspect]
     Active Substance: CORTISONE ACETATE
     Route: 003
  38. CORTISONE ACETATE [Suspect]
     Active Substance: CORTISONE ACETATE
     Route: 065
  39. CORTISONE ACETATE [Suspect]
     Active Substance: CORTISONE ACETATE
     Route: 048
  40. CORTISONE ACETATE [Suspect]
     Active Substance: CORTISONE ACETATE
     Route: 058
  41. CORTISONE ACETATE [Suspect]
     Active Substance: CORTISONE ACETATE
     Route: 003
  42. CORTISONE ACETATE [Suspect]
     Active Substance: CORTISONE ACETATE
     Route: 048
  43. CORTISONE ACETATE [Suspect]
     Active Substance: CORTISONE ACETATE
     Route: 048
  44. CORTISONE ACETATE [Suspect]
     Active Substance: CORTISONE ACETATE
     Route: 065
  45. CORTISONE ACETATE [Suspect]
     Active Substance: CORTISONE ACETATE
     Route: 048
  46. CORTISONE ACETATE [Suspect]
     Active Substance: CORTISONE ACETATE
     Route: 058
  47. CORTISONE ACETATE [Suspect]
     Active Substance: CORTISONE ACETATE
     Route: 048
  48. CORTISONE ACETATE [Suspect]
     Active Substance: CORTISONE ACETATE
     Route: 003
  49. CORTISONE ACETATE [Suspect]
     Active Substance: CORTISONE ACETATE
     Route: 003
  50. CELEBREX [Suspect]
     Active Substance: CELECOXIB
     Indication: Product used for unknown indication
     Route: 065
  51. CELEBREX [Suspect]
     Active Substance: CELECOXIB
     Dosage: 2 DOSAGE FORM 1 EVERY 1 DAYS
     Route: 065
  52. CALCIUM GLUBIONATE [Suspect]
     Active Substance: CALCIUM GLUBIONATE
     Indication: Product used for unknown indication
     Route: 065
  53. CHLORHEXIDINE GLUCONATE [Suspect]
     Active Substance: CHLORHEXIDINE GLUCONATE
     Indication: Product used for unknown indication
     Route: 065
  54. CHLORHEXIDINE GLUCONATE [Suspect]
     Active Substance: CHLORHEXIDINE GLUCONATE
     Route: 065
  55. CHLORHEXIDINE GLUCONATE [Suspect]
     Active Substance: CHLORHEXIDINE GLUCONATE
     Route: 002
  56. CHLORHEXIDINE GLUCONATE [Suspect]
     Active Substance: CHLORHEXIDINE GLUCONATE
     Route: 048
  57. CHLORHEXIDINE GLUCONATE\ISOPROPYL ALCOHOL [Suspect]
     Active Substance: CHLORHEXIDINE GLUCONATE\ISOPROPYL ALCOHOL
     Indication: Product used for unknown indication
     Route: 065
  58. CHLORHEXIDINE GLUCONATE\ISOPROPYL ALCOHOL [Suspect]
     Active Substance: CHLORHEXIDINE GLUCONATE\ISOPROPYL ALCOHOL
     Route: 048
  59. CHLORHEXIDINE GLUCONATE\ISOPROPYL ALCOHOL [Suspect]
     Active Substance: CHLORHEXIDINE GLUCONATE\ISOPROPYL ALCOHOL
     Route: 002
  60. COD LIVER OIL [Suspect]
     Active Substance: COD LIVER OIL
     Indication: Product used for unknown indication
     Route: 065
  61. CIMZIA [Suspect]
     Active Substance: CERTOLIZUMAB PEGOL
     Indication: Rheumatoid arthritis
     Dosage: 1 DOSAGE FORM 1 EVERY 1 DAYS
     Route: 058
  62. CIMZIA [Suspect]
     Active Substance: CERTOLIZUMAB PEGOL
     Route: 058
  63. CIMZIA [Suspect]
     Active Substance: CERTOLIZUMAB PEGOL
     Dosage: 1 DOSAGE FORM 1 EVERY 1 DAYS
     Route: 058
  64. CIMZIA [Suspect]
     Active Substance: CERTOLIZUMAB PEGOL
     Route: 065
  65. CIMZIA [Suspect]
     Active Substance: CERTOLIZUMAB PEGOL
     Route: 058
  66. CIMZIA [Suspect]
     Active Substance: CERTOLIZUMAB PEGOL
     Route: 058
  67. CIMZIA [Suspect]
     Active Substance: CERTOLIZUMAB PEGOL
     Route: 058
  68. CIMZIA [Suspect]
     Active Substance: CERTOLIZUMAB PEGOL
     Route: 058
  69. CIMZIA [Suspect]
     Active Substance: CERTOLIZUMAB PEGOL
     Route: 058
  70. CIMZIA [Suspect]
     Active Substance: CERTOLIZUMAB PEGOL
     Route: 058
  71. CIMZIA [Suspect]
     Active Substance: CERTOLIZUMAB PEGOL
     Route: 058
  72. CALCIUM CARBONATE [Suspect]
     Active Substance: CALCIUM CARBONATE
     Indication: Product used for unknown indication
     Route: 065
  73. CALCIUM CARBONATE [Suspect]
     Active Substance: CALCIUM CARBONATE
     Route: 065
  74. CHOLECALCIFEROL [Suspect]
     Active Substance: CHOLECALCIFEROL
     Indication: Product used for unknown indication
     Route: 065
  75. CELECOXIB [Suspect]
     Active Substance: CELECOXIB
     Indication: Product used for unknown indication
     Route: 065
  76. CELECOXIB [Suspect]
     Active Substance: CELECOXIB
     Dosage: 1 DOSAGE FORM 1 EVERY 1 DAYS
     Route: 065
  77. CERTOLIZUMAB PEGOL [Suspect]
     Active Substance: CERTOLIZUMAB PEGOL
     Indication: Product used for unknown indication
     Route: 065
  78. CETIRIZINE HYDROCHLORIDE [Suspect]
     Active Substance: CETIRIZINE HYDROCHLORIDE
     Indication: Rheumatoid arthritis
     Dosage: 25 MG 1 EVERY 1 DAYS
     Route: 048
  79. CETIRIZINE HYDROCHLORIDE [Suspect]
     Active Substance: CETIRIZINE HYDROCHLORIDE
     Dosage: 10 MG 1 EVERY 1 DAYS
     Route: 048
  80. CETIRIZINE HYDROCHLORIDE [Suspect]
     Active Substance: CETIRIZINE HYDROCHLORIDE
     Dosage: 25 MG 1 EVERY 1 DAYS
     Route: 048
  81. CETIRIZINE HYDROCHLORIDE [Suspect]
     Active Substance: CETIRIZINE HYDROCHLORIDE
     Dosage: 10 MG 1 EVERY 1 DAYS
     Route: 048
  82. CETIRIZINE HYDROCHLORIDE [Suspect]
     Active Substance: CETIRIZINE HYDROCHLORIDE
     Dosage: 10 MG 1 EVERY 1 DAYS
     Route: 048
  83. CETIRIZINE HYDROCHLORIDE [Suspect]
     Active Substance: CETIRIZINE HYDROCHLORIDE
     Route: 048
  84. CETIRIZINE HYDROCHLORIDE [Suspect]
     Active Substance: CETIRIZINE HYDROCHLORIDE
     Route: 065
  85. CHLORAPREP [Suspect]
     Active Substance: CHLORHEXIDINE GLUCONATE\ISOPROPYL ALCOHOL
     Indication: Product used for unknown indication
     Route: 065
  86. CETRIMIDE\CHLORHEXIDINE [Suspect]
     Active Substance: CETRIMIDE\CHLORHEXIDINE
     Indication: Product used for unknown indication
     Route: 002
  87. CETRIMIDE\CHLORHEXIDINE [Suspect]
     Active Substance: CETRIMIDE\CHLORHEXIDINE
     Route: 048
  88. CETRIMIDE\CHLORHEXIDINE [Suspect]
     Active Substance: CETRIMIDE\CHLORHEXIDINE
     Route: 065
  89. CETRIMIDE\CHLORHEXIDINE [Suspect]
     Active Substance: CETRIMIDE\CHLORHEXIDINE
     Route: 065
  90. DICLOFENAC DIETHYLAMINE [Suspect]
     Active Substance: DICLOFENAC DIETHYLAMINE
     Indication: Product used for unknown indication
     Route: 065
  91. DOXYCYCLINE HYCLATE [Suspect]
     Active Substance: DOXYCYCLINE HYCLATE
     Indication: Product used for unknown indication
     Route: 065
  92. DOXYCYCLINE HYCLATE [Suspect]
     Active Substance: DOXYCYCLINE HYCLATE
     Route: 065
  93. DOXYCYCLINE HYCLATE [Suspect]
     Active Substance: DOXYCYCLINE HYCLATE
     Route: 065
  94. DICLOFENAC [Suspect]
     Active Substance: DICLOFENAC
     Indication: Product used for unknown indication
     Route: 058
  95. DICLOFENAC [Suspect]
     Active Substance: DICLOFENAC
     Dosage: 50 MG 1 EVERY 1 DAYS
     Route: 058
  96. DICLOFENAC [Suspect]
     Active Substance: DICLOFENAC
     Route: 058
  97. DICLOFENAC [Suspect]
     Active Substance: DICLOFENAC
     Route: 058
  98. DICLOFENAC [Suspect]
     Active Substance: DICLOFENAC
     Route: 047
  99. DICLOFENAC [Suspect]
     Active Substance: DICLOFENAC
     Route: 048
  100. DICLOFENAC [Suspect]
     Active Substance: DICLOFENAC
     Route: 065
  101. DESOXIMETASONE [Suspect]
     Active Substance: DESOXIMETASONE
     Indication: Rheumatoid arthritis
     Route: 003
  102. DESOXIMETASONE [Suspect]
     Active Substance: DESOXIMETASONE
     Route: 061
  103. DESOXIMETASONE [Suspect]
     Active Substance: DESOXIMETASONE
     Route: 048
  104. DESOXIMETASONE [Suspect]
     Active Substance: DESOXIMETASONE
     Route: 058
  105. DESOXIMETASONE [Suspect]
     Active Substance: DESOXIMETASONE
     Route: 048
  106. DESOXIMETASONE [Suspect]
     Active Substance: DESOXIMETASONE
     Route: 003
  107. DESOXIMETASONE [Suspect]
     Active Substance: DESOXIMETASONE
     Route: 061
  108. DESOXIMETASONE [Suspect]
     Active Substance: DESOXIMETASONE
     Route: 003
  109. DESOXIMETASONE [Suspect]
     Active Substance: DESOXIMETASONE
     Route: 065
  110. DESOXIMETASONE [Suspect]
     Active Substance: DESOXIMETASONE
     Route: 061
  111. DESOXIMETASONE [Suspect]
     Active Substance: DESOXIMETASONE
     Route: 058
  112. DESOXIMETASONE [Suspect]
     Active Substance: DESOXIMETASONE
     Route: 048
  113. DESOXIMETASONE [Suspect]
     Active Substance: DESOXIMETASONE
     Route: 003
  114. DESOXIMETASONE [Suspect]
     Active Substance: DESOXIMETASONE
     Route: 061
  115. DESOXIMETASONE [Suspect]
     Active Substance: DESOXIMETASONE
     Route: 042
  116. DESOXIMETASONE [Suspect]
     Active Substance: DESOXIMETASONE
     Route: 048
  117. DESOXIMETASONE [Suspect]
     Active Substance: DESOXIMETASONE
     Route: 058
  118. DESOXIMETASONE [Suspect]
     Active Substance: DESOXIMETASONE
     Route: 003
  119. DESOXIMETASONE [Suspect]
     Active Substance: DESOXIMETASONE
     Route: 048
  120. DESOXIMETASONE [Suspect]
     Active Substance: DESOXIMETASONE
     Route: 058
  121. DESOXIMETASONE [Suspect]
     Active Substance: DESOXIMETASONE
     Route: 048
  122. DESOXIMETASONE [Suspect]
     Active Substance: DESOXIMETASONE
     Route: 058
  123. DESOXIMETASONE [Suspect]
     Active Substance: DESOXIMETASONE
     Route: 048
  124. DESOXIMETASONE [Suspect]
     Active Substance: DESOXIMETASONE
     Route: 003
  125. DESOXIMETASONE [Suspect]
     Active Substance: DESOXIMETASONE
     Route: 065
  126. DESOXIMETASONE [Suspect]
     Active Substance: DESOXIMETASONE
     Route: 003
  127. DESOXIMETASONE [Suspect]
     Active Substance: DESOXIMETASONE
     Route: 048
  128. DESOXIMETASONE [Suspect]
     Active Substance: DESOXIMETASONE
     Route: 003
  129. DESOXIMETASONE [Suspect]
     Active Substance: DESOXIMETASONE
     Route: 065
  130. DESOXIMETASONE [Suspect]
     Active Substance: DESOXIMETASONE
     Route: 058
  131. DESOXIMETASONE [Suspect]
     Active Substance: DESOXIMETASONE
     Route: 048
  132. DESOXIMETASONE [Suspect]
     Active Substance: DESOXIMETASONE
     Route: 048
  133. DESOXIMETASONE [Suspect]
     Active Substance: DESOXIMETASONE
     Route: 061
  134. DESOXIMETASONE [Suspect]
     Active Substance: DESOXIMETASONE
     Route: 065
  135. DESOXIMETASONE [Suspect]
     Active Substance: DESOXIMETASONE
     Route: 058
  136. DESOXIMETASONE [Suspect]
     Active Substance: DESOXIMETASONE
     Route: 061
  137. DESOXIMETASONE [Suspect]
     Active Substance: DESOXIMETASONE
     Route: 065
  138. DESOXIMETASONE [Suspect]
     Active Substance: DESOXIMETASONE
     Route: 065
  139. DESOXIMETASONE [Suspect]
     Active Substance: DESOXIMETASONE
     Route: 058
  140. DESOXIMETASONE [Suspect]
     Active Substance: DESOXIMETASONE
     Route: 065
  141. DESOXIMETASONE [Suspect]
     Active Substance: DESOXIMETASONE
     Route: 003
  142. DESOXIMETASONE [Suspect]
     Active Substance: DESOXIMETASONE
     Route: 061
  143. DESOXIMETASONE [Suspect]
     Active Substance: DESOXIMETASONE
     Route: 003
  144. DESOXIMETASONE [Suspect]
     Active Substance: DESOXIMETASONE
     Dosage: UNK, 1 EVERY 1 WEEKS
     Route: 058
  145. DESOXIMETASONE [Suspect]
     Active Substance: DESOXIMETASONE
     Route: 048
  146. DESOXIMETASONE [Suspect]
     Active Substance: DESOXIMETASONE
     Route: 048
  147. DESOXIMETASONE [Suspect]
     Active Substance: DESOXIMETASONE
     Dosage: 25 MILLIGRAM, 1 EVERY 1 WEEKS
     Route: 048
  148. DESOXIMETASONE [Suspect]
     Active Substance: DESOXIMETASONE
     Route: 003
  149. DICLOFENAC POTASSIUM [Suspect]
     Active Substance: DICLOFENAC POTASSIUM
     Indication: Product used for unknown indication
     Route: 065
  150. DICLOFENAC SODIUM [Suspect]
     Active Substance: DICLOFENAC SODIUM
     Indication: Product used for unknown indication
     Route: 047
  151. DICLOFENAC SODIUM [Suspect]
     Active Substance: DICLOFENAC SODIUM
     Route: 048
  152. DICLOFENAC SODIUM [Suspect]
     Active Substance: DICLOFENAC SODIUM
     Dosage: 50 MG 1 EVERY 1 DAYS
     Route: 058
  153. DICLOFENAC SODIUM [Suspect]
     Active Substance: DICLOFENAC SODIUM
     Indication: Product used for unknown indication
     Route: 047
  154. DICLOFENAC SODIUM [Suspect]
     Active Substance: DICLOFENAC SODIUM
     Route: 065
  155. DICLOFENAC SODIUM [Suspect]
     Active Substance: DICLOFENAC SODIUM
     Route: 058
  156. DICLOFENAC SODIUM [Suspect]
     Active Substance: DICLOFENAC SODIUM
     Dosage: 50 MG 1 EVERY 1 DAYS
     Route: 058
  157. DICLOFENAC SODIUM [Suspect]
     Active Substance: DICLOFENAC SODIUM
     Route: 048
  158. DICLOFENAC SODIUM [Suspect]
     Active Substance: DICLOFENAC SODIUM
     Route: 065
  159. DICLOFENAC SODIUM [Suspect]
     Active Substance: DICLOFENAC SODIUM
     Route: 058
  160. DICLOFENAC SODIUM [Suspect]
     Active Substance: DICLOFENAC SODIUM
     Route: 058
  161. DICLOFENAC SODIUM [Suspect]
     Active Substance: DICLOFENAC SODIUM
     Route: 065
  162. ENBREL [Suspect]
     Active Substance: ETANERCEPT
     Indication: Rheumatoid arthritis
     Route: 058
  163. ENBREL [Suspect]
     Active Substance: ETANERCEPT
     Indication: Psoriatic arthropathy
     Route: 058
  164. ENBREL [Suspect]
     Active Substance: ETANERCEPT
     Dosage: 20 MG 1 EVERY 1 WEEKS
     Route: 058
  165. ENBREL [Suspect]
     Active Substance: ETANERCEPT
     Dosage: 50 MG 1 EVERY 1 WEEKS
     Route: 058
  166. ENBREL [Suspect]
     Active Substance: ETANERCEPT
     Dosage: 20 MG 1 EVERY 1 WEEKS
     Route: 058
  167. FOLIC ACID [Suspect]
     Active Substance: FOLIC ACID
     Indication: Rheumatoid arthritis
     Dosage: 5 MG 1 EVERY 1 DAYS
     Route: 048
  168. FOLIC ACID [Suspect]
     Active Substance: FOLIC ACID
     Route: 065
  169. FOLIC ACID [Suspect]
     Active Substance: FOLIC ACID
     Route: 065
  170. FOLIC ACID [Suspect]
     Active Substance: FOLIC ACID
     Route: 065
  171. FOLIC ACID [Suspect]
     Active Substance: FOLIC ACID
     Route: 058
  172. FOLIC ACID [Suspect]
     Active Substance: FOLIC ACID
     Route: 065
  173. FOLIC ACID [Suspect]
     Active Substance: FOLIC ACID
     Route: 065
  174. FOLIC ACID [Suspect]
     Active Substance: FOLIC ACID
     Route: 048
  175. FOLIC ACID [Suspect]
     Active Substance: FOLIC ACID
     Route: 065
  176. FOLIC ACID [Suspect]
     Active Substance: FOLIC ACID
     Route: 048
  177. FOLIC ACID [Suspect]
     Active Substance: FOLIC ACID
     Route: 058
  178. FOLIC ACID [Suspect]
     Active Substance: FOLIC ACID
     Route: 065
  179. FOLIC ACID [Suspect]
     Active Substance: FOLIC ACID
     Route: 058
  180. FOLIC ACID [Suspect]
     Active Substance: FOLIC ACID
     Route: 048
  181. FOLIC ACID [Suspect]
     Active Substance: FOLIC ACID
     Route: 065
  182. FOSAMAX [Suspect]
     Active Substance: ALENDRONATE SODIUM
     Indication: Rheumatoid arthritis
     Route: 065
  183. FOSAMAX [Suspect]
     Active Substance: ALENDRONATE SODIUM
     Route: 048
  184. FOSAMAX [Suspect]
     Active Substance: ALENDRONATE SODIUM
     Route: 048
  185. FLUMETHASONE PIVALATE [Suspect]
     Active Substance: FLUMETHASONE PIVALATE
     Indication: Rheumatoid arthritis
     Route: 058
  186. FLUMETHASONE PIVALATE [Suspect]
     Active Substance: FLUMETHASONE PIVALATE
     Indication: Product used for unknown indication
     Route: 058
  187. FOSAPREPITANT DIMEGLUMINE [Suspect]
     Active Substance: FOSAPREPITANT DIMEGLUMINE
     Indication: Product used for unknown indication
     Route: 048
  188. FOSAPREPITANT DIMEGLUMINE [Suspect]
     Active Substance: FOSAPREPITANT DIMEGLUMINE
     Route: 065
  189. FOSAPREPITANT DIMEGLUMINE [Suspect]
     Active Substance: FOSAPREPITANT DIMEGLUMINE
     Route: 042
  190. GOLIMUMAB [Suspect]
     Active Substance: GOLIMUMAB
     Indication: Rheumatoid arthritis
     Route: 065
  191. GOLIMUMAB [Suspect]
     Active Substance: GOLIMUMAB
     Route: 058
  192. GOLIMUMAB [Suspect]
     Active Substance: GOLIMUMAB
     Route: 042
  193. GOLIMUMAB [Suspect]
     Active Substance: GOLIMUMAB
     Route: 058
  194. GOLIMUMAB [Suspect]
     Active Substance: GOLIMUMAB
     Route: 052
  195. GOLIMUMAB [Suspect]
     Active Substance: GOLIMUMAB
     Route: 058
  196. HYDROXYCHLOROQUINE SULFATE [Suspect]
     Active Substance: HYDROXYCHLOROQUINE SULFATE
     Indication: Systemic lupus erythematosus
     Dosage: 4000 MG 1 EVERY 1 DAYS
     Route: 058
  197. HYDROXYCHLOROQUINE SULFATE [Suspect]
     Active Substance: HYDROXYCHLOROQUINE SULFATE
     Indication: Rheumatoid arthritis
     Route: 048
  198. HYDROXYCHLOROQUINE SULFATE [Suspect]
     Active Substance: HYDROXYCHLOROQUINE SULFATE
     Dosage: 40 MG 1 EVERY 1 DAYS
     Route: 065
  199. HYDROXYCHLOROQUINE SULFATE [Suspect]
     Active Substance: HYDROXYCHLOROQUINE SULFATE
     Route: 048
  200. HUMIRA [Suspect]
     Active Substance: ADALIMUMAB
     Indication: Rheumatoid arthritis
     Route: 058
  201. HUMIRA [Suspect]
     Active Substance: ADALIMUMAB
     Indication: Psoriatic arthropathy
     Route: 058
  202. HUMIRA [Suspect]
     Active Substance: ADALIMUMAB
     Route: 065
  203. HUMIRA [Suspect]
     Active Substance: ADALIMUMAB
     Route: 058
  204. HUMIRA [Suspect]
     Active Substance: ADALIMUMAB
     Route: 058
  205. HUMIRA [Suspect]
     Active Substance: ADALIMUMAB
     Route: 058
  206. HUMIRA [Suspect]
     Active Substance: ADALIMUMAB
     Route: 065
  207. HUMIRA [Suspect]
     Active Substance: ADALIMUMAB
     Route: 058
  208. HUMIRA [Suspect]
     Active Substance: ADALIMUMAB
     Route: 058
  209. HUMIRA [Suspect]
     Active Substance: ADALIMUMAB
     Route: 058
  210. HUMIRA [Suspect]
     Active Substance: ADALIMUMAB
     Route: 058
  211. HUMIRA [Suspect]
     Active Substance: ADALIMUMAB
     Route: 058
  212. HUMIRA [Suspect]
     Active Substance: ADALIMUMAB
     Route: 058
  213. HYDROCORTISONE [Suspect]
     Active Substance: HYDROCORTISONE
     Indication: Rheumatoid arthritis
     Route: 003
  214. HYDROCORTISONE [Suspect]
     Active Substance: HYDROCORTISONE
     Route: 048
  215. HYDROCORTISONE [Suspect]
     Active Substance: HYDROCORTISONE
     Route: 058
  216. HYDROCORTISONE [Suspect]
     Active Substance: HYDROCORTISONE
     Route: 065
  217. HYDROCORTISONE [Suspect]
     Active Substance: HYDROCORTISONE
     Route: 058
  218. HYDROCORTISONE [Suspect]
     Active Substance: HYDROCORTISONE
     Route: 065
  219. HYDROCORTISONE [Suspect]
     Active Substance: HYDROCORTISONE
     Route: 003
  220. HYDROCORTISONE [Suspect]
     Active Substance: HYDROCORTISONE
     Route: 065
  221. HYDROCORTISONE [Suspect]
     Active Substance: HYDROCORTISONE
     Route: 048
  222. HYDROCORTISONE [Suspect]
     Active Substance: HYDROCORTISONE
     Route: 003
  223. HYDROCORTISONE [Suspect]
     Active Substance: HYDROCORTISONE
     Route: 065
  224. HYDROCORTISONE [Suspect]
     Active Substance: HYDROCORTISONE
     Route: 058
  225. HYDROCORTISONE [Suspect]
     Active Substance: HYDROCORTISONE
     Route: 065
  226. HYDROCORTISONE [Suspect]
     Active Substance: HYDROCORTISONE
     Route: 048
  227. HYDROCORTISONE BUTYRATE [Suspect]
     Active Substance: HYDROCORTISONE BUTYRATE
     Indication: Rheumatoid arthritis
     Route: 058
  228. HYDROCORTISONE BUTYRATE [Suspect]
     Active Substance: HYDROCORTISONE BUTYRATE
     Route: 058
  229. HYDROCORTISONE SODIUM SUCCINATE [Suspect]
     Active Substance: HYDROCORTISONE SODIUM SUCCINATE
     Indication: Rheumatoid arthritis
     Route: 048
  230. HYDROCORTISONE SODIUM SUCCINATE [Suspect]
     Active Substance: HYDROCORTISONE SODIUM SUCCINATE
     Route: 065
  231. HYDROCORTISONE SODIUM SUCCINATE [Suspect]
     Active Substance: HYDROCORTISONE SODIUM SUCCINATE
     Route: 048
  232. HYDROCORTISONE SODIUM SUCCINATE [Suspect]
     Active Substance: HYDROCORTISONE SODIUM SUCCINATE
     Route: 048
  233. HYDROXYCHLOROQUINE [Suspect]
     Active Substance: HYDROXYCHLOROQUINE
     Indication: Rheumatoid arthritis
     Dosage: 400 MG 1 EVERY 1 DAYS
     Route: 065
  234. HYDROXYCHLOROQUINE [Suspect]
     Active Substance: HYDROXYCHLOROQUINE
     Dosage: 400 MG 1 EVERY 1 DAYS
     Route: 065
  235. INFLIXIMAB [Suspect]
     Active Substance: INFLIXIMAB
     Indication: Rheumatoid arthritis
     Route: 042
  236. INFLIXIMAB [Suspect]
     Active Substance: INFLIXIMAB
     Route: 042
  237. ISOPROPYL ALCOHOL [Suspect]
     Active Substance: ISOPROPYL ALCOHOL
     Indication: Product used for unknown indication
     Route: 065
  238. ISOPROPYL ALCOHOL [Suspect]
     Active Substance: ISOPROPYL ALCOHOL
     Route: 065
  239. ISOPROPYL ALCOHOL [Suspect]
     Active Substance: ISOPROPYL ALCOHOL
     Route: 065
  240. LEFLUNOMIDE [Suspect]
     Active Substance: LEFLUNOMIDE
     Indication: Rheumatoid arthritis
     Route: 048
  241. LEFLUNOMIDE [Suspect]
     Active Substance: LEFLUNOMIDE
     Route: 065
  242. LEFLUNOMIDE [Suspect]
     Active Substance: LEFLUNOMIDE
     Route: 048
  243. LEFLUNOMIDE [Suspect]
     Active Substance: LEFLUNOMIDE
     Route: 065
  244. LYRICA [Suspect]
     Active Substance: PREGABALIN
     Indication: Product used for unknown indication
     Route: 065
  245. METHOTREXATE [Suspect]
     Active Substance: METHOTREXATE
     Indication: Rheumatoid arthritis
     Route: 048
  246. METHOTREXATE [Suspect]
     Active Substance: METHOTREXATE
     Route: 058
  247. METHOTREXATE [Suspect]
     Active Substance: METHOTREXATE
     Route: 065
  248. METHOTREXATE [Suspect]
     Active Substance: METHOTREXATE
     Route: 065
  249. METHOTREXATE [Suspect]
     Active Substance: METHOTREXATE
     Route: 065
  250. METHOTREXATE [Suspect]
     Active Substance: METHOTREXATE
     Route: 048
  251. METHOTREXATE [Suspect]
     Active Substance: METHOTREXATE
     Route: 058
  252. METHOTREXATE [Suspect]
     Active Substance: METHOTREXATE
     Route: 065
  253. METHOTREXATE [Suspect]
     Active Substance: METHOTREXATE
     Route: 048
  254. METHOTREXATE [Suspect]
     Active Substance: METHOTREXATE
     Dosage: 20 MG 1 EVERY 1 WEEKS
     Route: 058
  255. METHOTREXATE [Suspect]
     Active Substance: METHOTREXATE
     Dosage: 25 MG 1 EVERY 1 DAYS
     Route: 058
  256. METHOTREXATE [Suspect]
     Active Substance: METHOTREXATE
     Route: 013
  257. METHOTREXATE [Suspect]
     Active Substance: METHOTREXATE
     Route: 048
  258. METHOTREXATE [Suspect]
     Active Substance: METHOTREXATE
     Route: 013
  259. METHOTREXATE [Suspect]
     Active Substance: METHOTREXATE
     Route: 048
  260. METHOTREXATE [Suspect]
     Active Substance: METHOTREXATE
     Dosage: 2 DOSAGE FORM 1 EVERY 1 DAYS
     Route: 048
  261. METHOTREXATE [Suspect]
     Active Substance: METHOTREXATE
     Dosage: 25 MG 1 EVERY 1 WEEKS
     Route: 037
  262. METHOTREXATE [Suspect]
     Active Substance: METHOTREXATE
     Dosage: 25 MG 1 EVERY 1 WEEKS
     Route: 048
  263. METHOTREXATE [Suspect]
     Active Substance: METHOTREXATE
     Route: 048
  264. METHOTREXATE [Suspect]
     Active Substance: METHOTREXATE
     Dosage: 20 MILLIGRAM, 1 EVERY 1 DAYS
     Route: 058
  265. METHOTREXATE [Suspect]
     Active Substance: METHOTREXATE
     Dosage: 15 MILLIGRAM, 1 EVERY 1 DAYS
     Route: 048
  266. METHOTREXATE [Suspect]
     Active Substance: METHOTREXATE
     Dosage: 25 MILLIGRAM, 1 EVERY 1 DAYS
     Route: 065
  267. METHOTREXATE [Suspect]
     Active Substance: METHOTREXATE
     Route: 048
  268. METHOTREXATE [Suspect]
     Active Substance: METHOTREXATE
     Dosage: 20 MILLIGRAM, 1 EVERY 1 DAYS
     Route: 048
  269. METHOTREXATE [Suspect]
     Active Substance: METHOTREXATE
     Route: 048
  270. METHOTREXATE [Suspect]
     Active Substance: METHOTREXATE
     Route: 048
  271. METHOTREXATE [Suspect]
     Active Substance: METHOTREXATE
     Route: 048
  272. METHOTREXATE [Suspect]
     Active Substance: METHOTREXATE
     Route: 065
  273. METHOTREXATE [Suspect]
     Active Substance: METHOTREXATE
     Route: 058
  274. METHOTREXATE [Suspect]
     Active Substance: METHOTREXATE
     Route: 048
  275. METHOTREXATE [Suspect]
     Active Substance: METHOTREXATE
     Route: 048
  276. METHOTREXATE [Suspect]
     Active Substance: METHOTREXATE
     Route: 058
  277. METHOTREXATE [Suspect]
     Active Substance: METHOTREXATE
     Route: 065
  278. METHOTREXATE [Suspect]
     Active Substance: METHOTREXATE
     Route: 065
  279. METHOTREXATE [Suspect]
     Active Substance: METHOTREXATE
     Route: 065
  280. METHOTREXATE [Suspect]
     Active Substance: METHOTREXATE
     Route: 048
  281. METHOTREXATE [Suspect]
     Active Substance: METHOTREXATE
     Route: 048
  282. METHOTREXATE [Suspect]
     Active Substance: METHOTREXATE
     Route: 048
  283. METHOTREXATE [Suspect]
     Active Substance: METHOTREXATE
     Route: 013
  284. METHOTREXATE [Suspect]
     Active Substance: METHOTREXATE
     Route: 048
  285. METHOTREXATE [Suspect]
     Active Substance: METHOTREXATE
     Route: 048
  286. METHOTREXATE [Suspect]
     Active Substance: METHOTREXATE
     Route: 065
  287. METHOTREXATE [Suspect]
     Active Substance: METHOTREXATE
     Route: 048
  288. METHOTREXATE [Suspect]
     Active Substance: METHOTREXATE
     Dosage: 2 GRAM, 1 EVERY 1 DAYS
     Route: 048
  289. METHOTREXATE [Suspect]
     Active Substance: METHOTREXATE
     Route: 013
  290. METHOTREXATE [Suspect]
     Active Substance: METHOTREXATE
     Dosage: 25 MILLIGRAM, 1 EVERY 1 DAYS
     Route: 058
  291. NAPROXEN SODIUM [Suspect]
     Active Substance: NAPROXEN SODIUM
     Indication: Rheumatoid arthritis
     Route: 065
  292. NAPROXEN SODIUM [Suspect]
     Active Substance: NAPROXEN SODIUM
     Route: 065
  293. NAPROXEN SODIUM [Suspect]
     Active Substance: NAPROXEN SODIUM
     Route: 065
  294. NAPROXEN SODIUM [Suspect]
     Active Substance: NAPROXEN SODIUM
     Route: 065
  295. NAPROXEN SODIUM [Suspect]
     Active Substance: NAPROXEN SODIUM
     Route: 065
  296. NEOMYCIN [Suspect]
     Active Substance: NEOMYCIN
     Indication: Product used for unknown indication
     Route: 049
  297. ORENCIA [Suspect]
     Active Substance: ABATACEPT
     Indication: Rheumatoid arthritis
     Route: 058
  298. ORENCIA [Suspect]
     Active Substance: ABATACEPT
     Route: 042
  299. ORENCIA [Suspect]
     Active Substance: ABATACEPT
     Route: 065
  300. ORENCIA [Suspect]
     Active Substance: ABATACEPT
     Route: 058
  301. ORENCIA [Suspect]
     Active Substance: ABATACEPT
     Route: 058
  302. ORENCIA [Suspect]
     Active Substance: ABATACEPT
     Route: 058
  303. ORENCIA [Suspect]
     Active Substance: ABATACEPT
     Route: 058
  304. ORENCIA [Suspect]
     Active Substance: ABATACEPT
     Route: 058
  305. ORENCIA [Suspect]
     Active Substance: ABATACEPT
     Route: 058
  306. ORENCIA [Suspect]
     Active Substance: ABATACEPT
     Route: 058
  307. ORENCIA [Suspect]
     Active Substance: ABATACEPT
     Route: 058
  308. ORENCIA [Suspect]
     Active Substance: ABATACEPT
     Route: 065
  309. ORENCIA [Suspect]
     Active Substance: ABATACEPT
     Route: 065
  310. ORENCIA [Suspect]
     Active Substance: ABATACEPT
     Route: 065
  311. OTEZLA [Suspect]
     Active Substance: APREMILAST
     Indication: Product used for unknown indication
     Route: 048
  312. OTEZLA [Suspect]
     Active Substance: APREMILAST
     Route: 048
  313. OTEZLA [Suspect]
     Active Substance: APREMILAST
     Route: 048
  314. OXYCODONE TEREPHTHALATE [Suspect]
     Active Substance: OXYCODONE TEREPHTHALATE
     Indication: Product used for unknown indication
     Route: 065
  315. OXYCODONE TEREPHTHALATE [Suspect]
     Active Substance: OXYCODONE TEREPHTHALATE
     Route: 016
  316. PREDNISONE [Suspect]
     Active Substance: PREDNISONE
     Indication: Rheumatoid arthritis
     Route: 048
  317. PREDNISONE [Suspect]
     Active Substance: PREDNISONE
     Indication: Psoriatic arthropathy
     Route: 048
  318. PREDNISONE [Suspect]
     Active Substance: PREDNISONE
     Indication: Condition aggravated
     Route: 048
  319. PREDNISONE [Suspect]
     Active Substance: PREDNISONE
     Route: 048
  320. PREDNISONE [Suspect]
     Active Substance: PREDNISONE
     Route: 065
  321. PREDNISONE [Suspect]
     Active Substance: PREDNISONE
     Route: 065
  322. PREDNISONE [Suspect]
     Active Substance: PREDNISONE
     Route: 065
  323. PREDNISONE [Suspect]
     Active Substance: PREDNISONE
     Route: 048
  324. PREDNISONE [Suspect]
     Active Substance: PREDNISONE
     Route: 065
  325. PREDNISONE [Suspect]
     Active Substance: PREDNISONE
     Route: 065
  326. PREDNISONE [Suspect]
     Active Substance: PREDNISONE
     Route: 065
  327. PREDNISONE [Suspect]
     Active Substance: PREDNISONE
     Route: 065
  328. PREDNISONE [Suspect]
     Active Substance: PREDNISONE
     Route: 048
  329. PSEUDOEPHEDRINE [Suspect]
     Active Substance: PSEUDOEPHEDRINE
     Indication: Product used for unknown indication
     Route: 065
  330. PSEUDOEPHEDRINE HYDROCHLORIDE AND TRIPROLIDINE HYDROCHLORIDE [Suspect]
     Active Substance: PSEUDOEPHEDRINE HYDROCHLORIDE\TRIPROLIDINE HYDROCHLORIDE
     Indication: Rheumatoid arthritis
     Route: 065
  331. PSEUDOEPHEDRINE HYDROCHLORIDE AND TRIPROLIDINE HYDROCHLORIDE [Suspect]
     Active Substance: PSEUDOEPHEDRINE HYDROCHLORIDE\TRIPROLIDINE HYDROCHLORIDE
     Route: 065
  332. PSEUDOEPHEDRINE HYDROCHLORIDE AND TRIPROLIDINE HYDROCHLORIDE [Suspect]
     Active Substance: PSEUDOEPHEDRINE HYDROCHLORIDE\TRIPROLIDINE HYDROCHLORIDE
     Route: 065
  333. PSEUDOEPHEDRINE HYDROCHLORIDE AND TRIPROLIDINE HYDROCHLORIDE [Suspect]
     Active Substance: PSEUDOEPHEDRINE HYDROCHLORIDE\TRIPROLIDINE HYDROCHLORIDE
     Route: 065
  334. PSEUDOEPHEDRINE HYDROCHLORIDE AND TRIPROLIDINE HYDROCHLORIDE [Suspect]
     Active Substance: PSEUDOEPHEDRINE HYDROCHLORIDE\TRIPROLIDINE HYDROCHLORIDE
     Route: 065
  335. PHTHALYLSULFATHIAZOLE [Suspect]
     Active Substance: PHTHALYLSULFATHIAZOLE
     Indication: Rheumatoid arthritis
     Route: 065
  336. PHTHALYLSULFATHIAZOLE [Suspect]
     Active Substance: PHTHALYLSULFATHIAZOLE
     Route: 065
  337. PHTHALYLSULFATHIAZOLE [Suspect]
     Active Substance: PHTHALYLSULFATHIAZOLE
     Route: 042
  338. PHTHALYLSULFATHIAZOLE [Suspect]
     Active Substance: PHTHALYLSULFATHIAZOLE
     Route: 048
  339. PHTHALYLSULFATHIAZOLE [Suspect]
     Active Substance: PHTHALYLSULFATHIAZOLE
     Route: 048
  340. PHTHALYLSULFATHIAZOLE [Suspect]
     Active Substance: PHTHALYLSULFATHIAZOLE
     Route: 065
  341. PHTHALYLSULFATHIAZOLE [Suspect]
     Active Substance: PHTHALYLSULFATHIAZOLE
     Route: 065
  342. PHTHALYLSULFATHIAZOLE [Suspect]
     Active Substance: PHTHALYLSULFATHIAZOLE
     Route: 048
  343. PHTHALYLSULFATHIAZOLE [Suspect]
     Active Substance: PHTHALYLSULFATHIAZOLE
     Route: 016
  344. PHTHALYLSULFATHIAZOLE [Suspect]
     Active Substance: PHTHALYLSULFATHIAZOLE
     Route: 048
  345. PHTHALYLSULFATHIAZOLE [Suspect]
     Active Substance: PHTHALYLSULFATHIAZOLE
     Route: 048
  346. PERIOGARD [Suspect]
     Active Substance: CHLORHEXIDINE GLUCONATE
     Indication: Product used for unknown indication
     Route: 002
  347. PERIOGARD [Suspect]
     Active Substance: CHLORHEXIDINE GLUCONATE
     Route: 016
  348. PERIOGARD [Suspect]
     Active Substance: CHLORHEXIDINE GLUCONATE
     Route: 048
  349. PERIOGARD [Suspect]
     Active Substance: CHLORHEXIDINE GLUCONATE
     Route: 016
  350. RITUXIMAB [Suspect]
     Active Substance: RITUXIMAB
     Indication: Rheumatoid arthritis
     Route: 042
  351. RITUXIMAB [Suspect]
     Active Substance: RITUXIMAB
     Route: 058
  352. RITUXIMAB [Suspect]
     Active Substance: RITUXIMAB
     Route: 042
  353. CETIRIZINE HYDROCHLORIDE\PSEUDOEPHEDRINE HYDROCHLORIDE [Suspect]
     Active Substance: CETIRIZINE HYDROCHLORIDE\PSEUDOEPHEDRINE HYDROCHLORIDE
     Indication: Rheumatoid arthritis
     Route: 065
  354. CETIRIZINE HYDROCHLORIDE\PSEUDOEPHEDRINE HYDROCHLORIDE [Suspect]
     Active Substance: CETIRIZINE HYDROCHLORIDE\PSEUDOEPHEDRINE HYDROCHLORIDE
     Route: 065
  355. CETIRIZINE HYDROCHLORIDE\PSEUDOEPHEDRINE HYDROCHLORIDE [Suspect]
     Active Substance: CETIRIZINE HYDROCHLORIDE\PSEUDOEPHEDRINE HYDROCHLORIDE
     Route: 065
  356. CETIRIZINE HYDROCHLORIDE\PSEUDOEPHEDRINE HYDROCHLORIDE [Suspect]
     Active Substance: CETIRIZINE HYDROCHLORIDE\PSEUDOEPHEDRINE HYDROCHLORIDE
     Route: 048
  357. CETIRIZINE HYDROCHLORIDE\PSEUDOEPHEDRINE HYDROCHLORIDE [Suspect]
     Active Substance: CETIRIZINE HYDROCHLORIDE\PSEUDOEPHEDRINE HYDROCHLORIDE
     Route: 048
  358. REMICADE [Suspect]
     Active Substance: INFLIXIMAB
     Indication: Rheumatoid arthritis
     Route: 065
  359. REMICADE [Suspect]
     Active Substance: INFLIXIMAB
     Route: 042
  360. CETIRIZINE HYDROCHLORIDE [Suspect]
     Active Substance: CETIRIZINE HYDROCHLORIDE
     Indication: Product used for unknown indication
     Route: 048
  361. SIMPONI [Suspect]
     Active Substance: GOLIMUMAB
     Indication: Rheumatoid arthritis
     Route: 058
  362. SIMPONI [Suspect]
     Active Substance: GOLIMUMAB
     Indication: Psoriatic arthropathy
     Route: 042
  363. SIMPONI [Suspect]
     Active Substance: GOLIMUMAB
     Route: 052
  364. SIMPONI [Suspect]
     Active Substance: GOLIMUMAB
     Route: 058
  365. SIMPONI [Suspect]
     Active Substance: GOLIMUMAB
     Route: 058
  366. SIMPONI [Suspect]
     Active Substance: GOLIMUMAB
     Route: 065
  367. SIMPONI [Suspect]
     Active Substance: GOLIMUMAB
     Route: 058
  368. SULFASALAZINE [Suspect]
     Active Substance: SULFASALAZINE
     Indication: Rheumatoid arthritis
     Route: 048
  369. SULFASALAZINE [Suspect]
     Active Substance: SULFASALAZINE
     Route: 048
  370. SULFASALAZINE [Suspect]
     Active Substance: SULFASALAZINE
     Route: 048
  371. SULFASALAZINE [Suspect]
     Active Substance: SULFASALAZINE
     Route: 048
  372. SULFASALAZINE [Suspect]
     Active Substance: SULFASALAZINE
     Route: 048
  373. SULFASALAZINE [Suspect]
     Active Substance: SULFASALAZINE
     Route: 048
  374. SULFASALAZINE [Suspect]
     Active Substance: SULFASALAZINE
     Route: 048
  375. SULFASALAZINE [Suspect]
     Active Substance: SULFASALAZINE
     Route: 048
  376. SULFASALAZINE [Suspect]
     Active Substance: SULFASALAZINE
     Route: 048
  377. SULFASALAZINE [Suspect]
     Active Substance: SULFASALAZINE
     Route: 048
  378. SULFASALAZINE [Suspect]
     Active Substance: SULFASALAZINE
     Route: 048
  379. SULFASALAZINE [Suspect]
     Active Substance: SULFASALAZINE
     Route: 048
  380. SULFASALAZINE [Suspect]
     Active Substance: SULFASALAZINE
     Route: 048
  381. SULFASALAZINE [Suspect]
     Active Substance: SULFASALAZINE
     Route: 048
  382. SULFASALAZINE [Suspect]
     Active Substance: SULFASALAZINE
     Route: 065
  383. SULFASALAZINE [Suspect]
     Active Substance: SULFASALAZINE
     Dosage: 500 MILLIGRAM, 1 EVERY 1 DAYS
     Route: 048
  384. SULFASALAZINE [Suspect]
     Active Substance: SULFASALAZINE
     Route: 048
  385. SULFASALAZINE [Suspect]
     Active Substance: SULFASALAZINE
     Route: 048
  386. SULFASALAZINE [Suspect]
     Active Substance: SULFASALAZINE
     Route: 048
  387. SULFASALAZINE [Suspect]
     Active Substance: SULFASALAZINE
     Route: 048
  388. SULFASALAZINE [Suspect]
     Active Substance: SULFASALAZINE
     Route: 048
  389. SULFASALAZINE [Suspect]
     Active Substance: SULFASALAZINE
     Route: 065
  390. SULFASALAZINE [Suspect]
     Active Substance: SULFASALAZINE
     Route: 065
  391. SULFASALAZINE [Suspect]
     Active Substance: SULFASALAZINE
     Route: 065
  392. SULFASALAZINE [Suspect]
     Active Substance: SULFASALAZINE
     Route: 048
  393. SULFASALAZINE [Suspect]
     Active Substance: SULFASALAZINE
     Route: 048
  394. SULFASALAZINE [Suspect]
     Active Substance: SULFASALAZINE
     Route: 065
  395. SULFASALAZINE [Suspect]
     Active Substance: SULFASALAZINE
     Route: 048
  396. SULFASALAZINE [Suspect]
     Active Substance: SULFASALAZINE
     Route: 065
  397. SULFASALAZINE [Suspect]
     Active Substance: SULFASALAZINE
     Route: 065
  398. SULFASALAZINE [Suspect]
     Active Substance: SULFASALAZINE
     Route: 048
  399. SULFASALAZINE [Suspect]
     Active Substance: SULFASALAZINE
     Route: 048
  400. SULFASALAZINE [Suspect]
     Active Substance: SULFASALAZINE
     Route: 048
  401. SULFASALAZINE [Suspect]
     Active Substance: SULFASALAZINE
     Route: 048
  402. SULFASALAZINE [Suspect]
     Active Substance: SULFASALAZINE
     Route: 048
  403. SULFASALAZINE [Suspect]
     Active Substance: SULFASALAZINE
     Route: 048
  404. SULFASALAZINE [Suspect]
     Active Substance: SULFASALAZINE
     Dosage: 1 GRAM, 1 EVERY 1 DAYS
     Route: 065
  405. SULFAMETHOXAZOLE\TRIMETHOPRIM [Suspect]
     Active Substance: SULFAMETHOXAZOLE\TRIMETHOPRIM
     Indication: Product used for unknown indication
     Route: 065
  406. SULFASALAZINE [Suspect]
     Active Substance: SULFASALAZINE
     Indication: Rheumatoid arthritis
     Dosage: 1 GRAM 1 EVERY 1 DAYS
     Route: 048
  407. SULFASALAZINE [Suspect]
     Active Substance: SULFASALAZINE
     Route: 065
  408. SULFASALAZINE [Suspect]
     Active Substance: SULFASALAZINE
     Route: 048
  409. SULFASALAZINE [Suspect]
     Active Substance: SULFASALAZINE
     Route: 048
  410. SULFASALAZINE [Suspect]
     Active Substance: SULFASALAZINE
     Route: 048
  411. SULFASALAZINE [Suspect]
     Active Substance: SULFASALAZINE
     Route: 065
  412. SULFASALAZINE [Suspect]
     Active Substance: SULFASALAZINE
     Route: 048
  413. SULFASALAZINE [Suspect]
     Active Substance: SULFASALAZINE
     Route: 048
  414. SULFASALAZINE [Suspect]
     Active Substance: SULFASALAZINE
     Route: 048
  415. STELARA [Suspect]
     Active Substance: USTEKINUMAB
     Indication: Product used for unknown indication
     Route: 058
  416. STELARA [Suspect]
     Active Substance: USTEKINUMAB
     Route: 065
  417. STELARA [Suspect]
     Active Substance: USTEKINUMAB
     Route: 065
  418. STELARA [Suspect]
     Active Substance: USTEKINUMAB
     Route: 058
  419. STELARA [Suspect]
     Active Substance: USTEKINUMAB
     Route: 042
  420. STELARA [Suspect]
     Active Substance: USTEKINUMAB
     Route: 058
  421. STELARA [Suspect]
     Active Substance: USTEKINUMAB
     Route: 042
  422. SULFAMETHOXAZOLE [Suspect]
     Active Substance: SULFAMETHOXAZOLE
     Indication: Product used for unknown indication
     Route: 065
  423. TOCILIZUMAB [Suspect]
     Active Substance: TOCILIZUMAB
     Indication: Rheumatoid arthritis
     Route: 058
  424. TOFACITINIB CITRATE [Suspect]
     Active Substance: TOFACITINIB CITRATE
     Indication: Rheumatoid arthritis
     Route: 065
  425. TOFACITINIB CITRATE [Suspect]
     Active Substance: TOFACITINIB CITRATE
     Indication: Psoriatic arthropathy
     Dosage: 5 MG 1 EVERY 1 WEEKS
     Route: 048
  426. TRAMADOL HYDROCHLORIDE [Suspect]
     Active Substance: TRAMADOL HYDROCHLORIDE
     Indication: Product used for unknown indication
     Route: 065
  427. TRIAMCINOLONE ACETONIDE [Suspect]
     Active Substance: TRIAMCINOLONE ACETONIDE
     Indication: Rheumatoid arthritis
     Route: 013
  428. USTEKINUMAB [Suspect]
     Active Substance: USTEKINUMAB
     Indication: Psoriatic arthropathy
     Route: 058
  429. USTEKINUMAB [Suspect]
     Active Substance: USTEKINUMAB
     Route: 065
  430. VITAMIN D3 [Suspect]
     Active Substance: CHOLECALCIFEROL
     Indication: Product used for unknown indication
     Route: 065
  431. VITAMIN C [Suspect]
     Active Substance: ASCORBIC ACID
     Indication: Product used for unknown indication
     Route: 016
  432. VITAMIN C [Suspect]
     Active Substance: ASCORBIC ACID
     Route: 065
  433. PREDNISONE [Suspect]
     Active Substance: PREDNISONE
     Indication: Product used for unknown indication
     Route: 048
  434. XELJANZ [Suspect]
     Active Substance: TOFACITINIB CITRATE
     Indication: Rheumatoid arthritis
     Route: 048
  435. XELJANZ [Suspect]
     Active Substance: TOFACITINIB CITRATE
     Route: 048
  436. XELJANZ [Suspect]
     Active Substance: TOFACITINIB CITRATE
     Route: 065
  437. XELJANZ [Suspect]
     Active Substance: TOFACITINIB CITRATE
     Route: 065
  438. XELJANZ [Suspect]
     Active Substance: TOFACITINIB CITRATE
     Route: 065
  439. XELJANZ [Suspect]
     Active Substance: TOFACITINIB CITRATE
     Route: 048
  440. XELJANZ [Suspect]
     Active Substance: TOFACITINIB CITRATE
     Dosage: 10 MG 1 EVERY 1 DAYS
     Route: 048
  441. XELJANZ [Suspect]
     Active Substance: TOFACITINIB CITRATE
     Route: 065

REACTIONS (26)
  - Red blood cell sedimentation rate increased [Fatal]
  - Respiratory disorder [Fatal]
  - Swollen joint count [Fatal]
  - Lupus-like syndrome [Fatal]
  - Muscle spasticity [Fatal]
  - X-ray abnormal [Fatal]
  - C-reactive protein increased [Fatal]
  - Deep vein thrombosis postoperative [Fatal]
  - C-reactive protein [Fatal]
  - Arthritis [Fatal]
  - Joint stiffness [Fatal]
  - Joint dislocation [Fatal]
  - Lower limb fracture [Fatal]
  - Gait inability [Fatal]
  - Tachycardia [Fatal]
  - Visual impairment [Fatal]
  - Swollen joint count increased [Fatal]
  - Thrombocytopenia [Fatal]
  - Weight fluctuation [Fatal]
  - White blood cell count increased [Fatal]
  - Vomiting [Fatal]
  - Drug tolerance decreased [Fatal]
  - Underdose [Fatal]
  - Prescribed underdose [Fatal]
  - Therapeutic product effect incomplete [Fatal]
  - Off label use [Fatal]
